FAERS Safety Report 11400087 (Version 1)
Quarter: 2015Q3

REPORT INFORMATION
  Report Type: Spontaneous
  Country: US (occurrence: US)
  Receive Date: 20150820
  Receipt Date: 20150820
  Transmission Date: 20151125
  Serious: No
  Sender: FDA-Public Use
  Company Number: US-SUPERNUS PHARMACEUTICALS, INC.-2015SUP00056

PATIENT
  Sex: Female
  Weight: 97.51 kg

DRUGS (9)
  1. TROKENDI XR [Suspect]
     Active Substance: TOPIRAMATE
     Indication: HEADACHE
     Dosage: 600 MG, 1X/DAY
     Route: 048
     Dates: start: 20140322, end: 20141029
  2. TROKENDI XR [Suspect]
     Active Substance: TOPIRAMATE
     Indication: SEIZURE
     Dosage: 400 MG, 1X/DAY
     Route: 048
     Dates: start: 20141029
  3. TROKENDI XR [Suspect]
     Active Substance: TOPIRAMATE
     Indication: HEADACHE
     Dosage: 50 MG, 1X/DAY
     Route: 048
     Dates: start: 20150315
  4. MAGNESIUM [Concomitant]
     Active Substance: MAGNESIUM
     Dosage: 250 MG, 1X/DAY
  5. CARAFATE SUSPENSION [Concomitant]
     Dosage: 10 ML, AS NEEDED
  6. AMITIZA [Concomitant]
     Active Substance: LUBIPROSTONE
     Dosage: 8 ?G, EVERY 48 HOURS
  7. PANTOPRAZOLE [Concomitant]
     Active Substance: PANTOPRAZOLE SODIUM
     Dosage: 40 MG, 2X/DAY
  8. TROKENDI XR [Suspect]
     Active Substance: TOPIRAMATE
     Indication: SEIZURE
  9. DICYCLOMINE [Concomitant]
     Active Substance: DICYCLOMINE HYDROCHLORIDE
     Dosage: 20 MG, 2X/DAY

REACTIONS (4)
  - Urinary incontinence [Recovering/Resolving]
  - Vaginal infection [Recovered/Resolved]
  - Irritable bowel syndrome [Recovering/Resolving]
  - Headache [Recovered/Resolved]

NARRATIVE: CASE EVENT DATE: 2014
